FAERS Safety Report 9173620 (Version 1)
Quarter: 2013Q1

REPORT INFORMATION
  Report Type: Spontaneous
  Country: PR (occurrence: PR)
  Receive Date: 20130320
  Receipt Date: 20130320
  Transmission Date: 20140127
  Serious: No
  Sender: FDA-Public Use
  Company Number: PR-BAYER-2012-100949

PATIENT
  Age: 11 Year
  Sex: Female

DRUGS (2)
  1. CIPRO 5 % ORAL SUSPENSION [Suspect]
  2. SWEETENER [Suspect]

REACTIONS (2)
  - Rash [None]
  - Wrong technique in drug usage process [None]
